FAERS Safety Report 4553887-6 (Version None)
Quarter: 2005Q1

REPORT INFORMATION
  Report Type: 
  Country: None (occurrence: None)
  Receive Date: 20050113
  Receipt Date: 20050113
  Transmission Date: 20050727
  Serious: Yes (Other)
  Sender: FDA-Public Use
  Company Number: None

PATIENT
  Age: 55 Year
  Sex: Male
  Weight: 177.81 kg

DRUGS (1)
  1. GABAPENTIN (GENERIC FOR NEURONTIN)(300 MG TID) [Suspect]
     Indication: NEUROPATHY
     Dosage: 300 MG PO TID
     Route: 048

REACTIONS (3)
  - BURNING SENSATION [None]
  - PHARMACEUTICAL PRODUCT COMPLAINT [None]
  - RASH [None]
